FAERS Safety Report 7285724-3 (Version None)
Quarter: 2011Q1

REPORT INFORMATION
  Report Type: 
  Country: None (occurrence: None)
  Receive Date: 20110210
  Receipt Date: 20110126
  Transmission Date: 20110831
  Serious: No
  Sender: FDA-Public Use
  Company Number: US-BAYER-2011-011014

PATIENT
  Sex: Female
  Weight: 80 kg

DRUGS (3)
  1. RITUXAN [Concomitant]
     Indication: PRODUCT USED FOR UNKNOWN INDICATION
     Dosage: ONCE WEEKLY
  2. KOGENATE FS [Suspect]
     Indication: IMMUNE TOLERANCE INDUCTION
     Dosage: UNK
     Route: 042
     Dates: start: 20110120, end: 20110122
  3. KOGENATE FS [Suspect]
     Dosage: UNK
     Route: 042
     Dates: start: 20110120, end: 20100122

REACTIONS (5)
  - CHEST DISCOMFORT [None]
  - PARAESTHESIA [None]
  - NAUSEA [None]
  - HYPOAESTHESIA [None]
  - MALAISE [None]
